FAERS Safety Report 7131059-9 (Version None)
Quarter: 2010Q4

REPORT INFORMATION
  Report Type: 
  Country: None (occurrence: None)
  Receive Date: 20101201
  Receipt Date: 20101119
  Transmission Date: 20110411
  Serious: Yes (Other)
  Sender: FDA-Public Use
  Company Number: TR-PFIZER INC-2010148232

PATIENT
  Age: 14 Year
  Sex: Male

DRUGS (3)
  1. PHENYTOIN SODIUM [Suspect]
     Indication: CONVULSION
     Dosage: 200 MG/DAILY
  2. HYDROCORTISONE [Interacting]
     Dosage: 15 MG/M2/DAY IN THREE DIVIDED DOSES
  3. FLUDROCORTISONE [Concomitant]
     Dosage: 0.1 MG/DAY

REACTIONS (6)
  - BLOOD CORTICOTROPHIN INCREASED [None]
  - DRUG INTERACTION [None]
  - GLUCOCORTICOIDS DECREASED [None]
  - HYPOGLYCAEMIA [None]
  - HYPONATRAEMIA [None]
  - VOMITING [None]
